FAERS Safety Report 5693069-8 (Version None)
Quarter: 2008Q2

REPORT INFORMATION
  Report Type: 
  Country: None (occurrence: None)
  Receive Date: 20080402
  Receipt Date: 20080402
  Transmission Date: 20081010
  Serious: Yes (Other)
  Sender: FDA-Public Use
  Company Number: None

PATIENT
  Sex: Male
  Weight: 88.4514 kg

DRUGS (1)
  1. CRESTOR [Suspect]
     Indication: BLOOD CHOLESTEROL
     Dosage: 20 MG DAILY PILL BY MOUTH INCREASED DOSE X2 IN 07
     Route: 048
     Dates: start: 20040201, end: 20070601

REACTIONS (2)
  - MUSCLE INJURY [None]
  - PAIN [None]
